FAERS Safety Report 10676652 (Version 1)
Quarter: 2014Q4

REPORT INFORMATION
  Report Type: Spontaneous
  Country: US (occurrence: None)
  Receive Date: 20141223
  Receipt Date: 20141223
  Transmission Date: 20150529
  Serious: Yes (Other)
  Sender: FDA-Public Use
  Company Number: None

PATIENT
  Age: 56 Year
  Sex: Male
  Weight: 88.45 kg

DRUGS (2)
  1. TAMIFLU [Suspect]
     Active Substance: OSELTAMIVIR PHOSPHATE
     Indication: INFLUENZA A VIRUS TEST POSITIVE
     Route: 048
  2. CHERATUSSIN AC [Suspect]
     Active Substance: CODEINE PHOSPHATE\GUAIFENESIN
     Indication: COUGH
     Dosage: 2 TSP
     Route: 048
     Dates: start: 20141219, end: 20141219

REACTIONS (8)
  - Dyspnoea [None]
  - Abnormal dreams [None]
  - Musculoskeletal chest pain [None]
  - Confusional state [None]
  - Cough [None]
  - Contusion [None]
  - Sleep disorder [None]
  - Epistaxis [None]

NARRATIVE: CASE EVENT DATE: 20141219
